FAERS Safety Report 10071676 (Version 2)
Quarter: 2014Q2

REPORT INFORMATION
  Report Type: Spontaneous
  Country: GB (occurrence: GB)
  Receive Date: 20140411
  Receipt Date: 20140522
  Transmission Date: 20141212
  Serious: Yes (Death)
  Sender: FDA-Public Use
  Company Number: GB-JNJFOC-20140405569

PATIENT
  Age: 4 Year
  Sex: Male

DRUGS (1)
  1. CALPOL [Suspect]
     Indication: PYREXIA
     Route: 065

REACTIONS (13)
  - Bronchopneumonia [Fatal]
  - Cardiac arrest [Fatal]
  - Pneumonia aspiration [Not Recovered/Not Resolved]
  - Atelectasis [Not Recovered/Not Resolved]
  - Skin discolouration [Not Recovered/Not Resolved]
  - Dyspnoea [Not Recovered/Not Resolved]
  - Petechiae [Not Recovered/Not Resolved]
  - Lethargy [Not Recovered/Not Resolved]
  - Drug administration error [Not Recovered/Not Resolved]
  - Pallor [Not Recovered/Not Resolved]
  - Peripheral coldness [Not Recovered/Not Resolved]
  - Diarrhoea [Not Recovered/Not Resolved]
  - Urinary incontinence [Not Recovered/Not Resolved]
